FAERS Safety Report 14987582 (Version 1)
Quarter: 2018Q2

REPORT INFORMATION
  Report Type: Spontaneous
  Country: GB (occurrence: GB)
  Receive Date: 20180608
  Receipt Date: 20180608
  Transmission Date: 20180711
  Serious: Yes (Life-Threatening)
  Sender: FDA-Public Use
  Company Number: PHHY2018GB016308

PATIENT
  Age: 55 Year
  Sex: Female
  Weight: 110 kg

DRUGS (2)
  1. DOCETAXEL. [Suspect]
     Active Substance: DOCETAXEL
     Dosage: 210 MG, UNK
     Route: 042
     Dates: start: 20171103
  2. DOCETAXEL. [Suspect]
     Active Substance: DOCETAXEL
     Indication: ADJUVANT THERAPY
     Dosage: 210 MG, UNK
     Route: 042
     Dates: start: 20171013, end: 20171103

REACTIONS (1)
  - Acute myocardial infarction [Recovered/Resolved]

NARRATIVE: CASE EVENT DATE: 20171020
